FAERS Safety Report 6486081-2 (Version None)
Quarter: 2009Q4

REPORT INFORMATION
  Report Type: 
  Country: None (occurrence: None)
  Receive Date: 20091207
  Receipt Date: 20091123
  Transmission Date: 20100525
  Serious: Yes (Hospitalization)
  Sender: FDA-Public Use
  Company Number: 2009AC000455

PATIENT
  Sex: Male

DRUGS (9)
  1. DIGOXIN [Suspect]
     Dosage: PO
     Route: 048
     Dates: start: 19870101
  2. METOPROLOL TARTRATE [Concomitant]
  3. VITAMIN B-12 [Concomitant]
  4. COLCHICINE [Concomitant]
  5. COUMADIN [Concomitant]
  6. ALLOPURINOL [Concomitant]
  7. FOLIC ACID [Concomitant]
  8. LASIX [Concomitant]
  9. GLYBURIDE [Concomitant]

REACTIONS (8)
  - CARDIAC DISORDER [None]
  - CARDIAC PACEMAKER INSERTION [None]
  - DYSPNOEA [None]
  - ECONOMIC PROBLEM [None]
  - MULTIPLE INJURIES [None]
  - RENAL IMPAIRMENT [None]
  - SURGERY [None]
  - UNEVALUABLE EVENT [None]
